FAERS Safety Report 6520956-0 (Version None)
Quarter: 2009Q4

REPORT INFORMATION
  Report Type: 
  Country: None (occurrence: None)
  Receive Date: 20091229
  Receipt Date: 20091216
  Transmission Date: 20100525
  Serious: Yes (Hospitalization)
  Sender: FDA-Public Use
  Company Number: DE-AMGEN-US381610

PATIENT
  Age: 55 Year
  Sex: Female

DRUGS (2)
  1. ENBREL [Suspect]
     Indication: PSORIATIC ARTHROPATHY
     Route: 058
     Dates: start: 20070101
  2. SYNTESTAN [Concomitant]
     Route: 048

REACTIONS (7)
  - BILIARY COLIC [None]
  - CHOLELITHIASIS [None]
  - CONDITION AGGRAVATED [None]
  - DIARRHOEA [None]
  - HEPATIC ENZYME INCREASED [None]
  - PSORIATIC ARTHROPATHY [None]
  - VOMITING [None]
